FAERS Safety Report 4543194-X (Version None)
Quarter: 2004Q4

REPORT INFORMATION
  Report Type: 
  Country: None (occurrence: None)
  Receive Date: 20041230
  Receipt Date: 20041227
  Transmission Date: 20050328
  Serious: Yes (Death)
  Sender: FDA-Public Use
  Company Number: 04-12-1737

PATIENT
  Age: 36 Year
  Sex: Female

DRUGS (4)
  1. CLOZAPINE [Suspect]
     Dosage: 500MG QD, ORAL
     Route: 048
     Dates: start: 20040201, end: 20041001
  2. PRILOSEC [Concomitant]
  3. OXYBUTYNIN [Concomitant]
  4. CLONAZEPAM [Concomitant]

REACTIONS (2)
  - LARGE INTESTINE PERFORATION [None]
  - MEGACOLON ACQUIRED [None]
